FAERS Safety Report 6428939-6 (Version None)
Quarter: 2009Q4

REPORT INFORMATION
  Report Type: 
  Country: None (occurrence: None)
  Receive Date: 20091102
  Receipt Date: 20091019
  Transmission Date: 20100525
  Serious: Yes (Hospitalization, Other)
  Sender: FDA-Public Use
  Company Number: A-US2009-27751

PATIENT
  Age: 80 Year
  Sex: Female

DRUGS (5)
  1. TRACLEER [Suspect]
     Indication: PULMONARY ARTERIAL HYPERTENSION
     Dosage: ORAL
     Route: 048
  2. VENTAVIS [Suspect]
     Indication: PULMONARY ARTERIAL HYPERTENSION
     Dosage: RESPIRATORY
     Route: 055
     Dates: start: 20090101, end: 20090911
  3. SILDENAFIL [Concomitant]
  4. TREPROSTINIL (TREPROSTINIL) [Concomitant]
  5. WARFARIN SODIUM [Concomitant]

REACTIONS (2)
  - ASCITES [None]
  - FLUID RETENTION [None]
